FAERS Safety Report 5911881-4 (Version None)
Quarter: 2008Q4

REPORT INFORMATION
  Report Type: 
  Country: None (occurrence: None)
  Receive Date: 20081008
  Receipt Date: 20080928
  Transmission Date: 20090506
  Serious: Yes (Hospitalization)
  Sender: FDA-Public Use
  Company Number: JP-BRISTOL-MYERS SQUIBB COMPANY-14358030

PATIENT
  Age: 66 Year

DRUGS (4)
  1. ENDOXAN [Suspect]
     Indication: INTERSTITIAL LUNG DISEASE
     Route: 041
     Dates: end: 20080828
  2. ENDOXAN [Suspect]
     Indication: OFF LABEL USE
     Route: 041
     Dates: end: 20080828
  3. MEROPEN [Suspect]
     Indication: PNEUMONIA
     Route: 041
     Dates: end: 20080828
  4. PASIL [Suspect]
     Indication: PNEUMONIA
     Route: 041
     Dates: end: 20080828

REACTIONS (1)
  - RENAL DISORDER [None]
